FAERS Safety Report 9261810 (Version 1)
Quarter: 2013Q2

REPORT INFORMATION
  Report Type: Spontaneous
  Country: US (occurrence: US)
  Receive Date: 20130429
  Receipt Date: 20130429
  Transmission Date: 20140414
  Serious: Yes (Other)
  Sender: FDA-Public Use
  Company Number: CHPA2013US007315

PATIENT
  Age: 73 Year
  Sex: Female

DRUGS (1)
  1. VOLTAREN GEL [Suspect]
     Indication: OSTEOARTHRITIS
     Dosage: 2 OR 4 GRAMS, UNK
     Route: 061
     Dates: start: 2009

REACTIONS (3)
  - Osteoarthritis [Unknown]
  - Dry skin [Unknown]
  - Drug administered at inappropriate site [Unknown]
